FAERS Safety Report 24210671 (Version 2)
Quarter: 2025Q2

REPORT INFORMATION
  Report Type: Report from Study
  Country: CA (occurrence: CA)
  Receive Date: 20240814
  Receipt Date: 20250513
  Transmission Date: 20250716
  Serious: Yes (Hospitalization, Other)
  Sender: GLAXOSMITHKLINE
  Company Number: CA-GLAXOSMITHKLINE-CA2023019737

PATIENT

DRUGS (1)
  1. MEPOLIZUMAB [Suspect]
     Active Substance: MEPOLIZUMAB
     Indication: Asthma
     Dosage: 100 MG, Q4W
     Route: 058
     Dates: start: 20220711

REACTIONS (8)
  - Pneumonia [Unknown]
  - Coronavirus infection [Unknown]
  - Coronavirus test positive [Unknown]
  - Asthma [Unknown]
  - Emphysema [Not Recovered/Not Resolved]
  - Pain [Unknown]
  - Exposure to SARS-CoV-2 [Unknown]
  - Drug ineffective [Unknown]
